FAERS Safety Report 23948433 (Version 1)
Quarter: 2024Q2

REPORT INFORMATION
  Report Type: Spontaneous
  Country: US (occurrence: US)
  Receive Date: 20240607
  Receipt Date: 20240607
  Transmission Date: 20240715
  Serious: No
  Sender: FDA-Public Use
  Company Number: US-ENDO PHARMACEUTICALS INC-2024-001693

PATIENT
  Age: 0 Year
  Sex: Male
  Weight: 9.86 kg

DRUGS (5)
  1. BOSENTAN [Suspect]
     Active Substance: BOSENTAN
     Indication: Neonatal pulmonary hypertension
     Dosage: 9.375 MILLIGRAM (6.25 MG/ML), BID (EVERY 12 HOURS SCHEDULED AT 8:00 AND 20:00)
     Dates: start: 20240326
  2. FUROSEMIDE [Concomitant]
     Active Substance: FUROSEMIDE
     Indication: Product used for unknown indication
     Dosage: 10 MILLIGRAM (10 MG/ML), OD (SCHEDULED AT 20:00)
     Dates: start: 20240404
  3. MELATONIN [Concomitant]
     Active Substance: MELATONIN
     Indication: Product used for unknown indication
     Dosage: 1 MILLIGRAM (3.33 MG/ML), OD (SCHEDULED AT 20:00)
     Dates: start: 20240326
  4. OMEPRAZOLE [Concomitant]
     Active Substance: DONEPEZIL HYDROCHLORIDE\OMEPRAZOLE\OMEPRAZOLE MAGNESIUM
     Indication: Product used for unknown indication
     Dosage: 8 MILLIGRAM (4 MG/ML), BID (EVERY 12 HOURS SCHEDULED AT 8:00 AND 20:00)
     Dates: start: 20240328
  5. TADALAFIL [Concomitant]
     Active Substance: TADALAFIL
     Indication: Product used for unknown indication
     Dosage: 10 MILLIGRAM (4 MG/ML), OD (SCHEDULED AT 8:00)
     Dates: start: 20240326

REACTIONS (2)
  - Blood glucose increased [Unknown]
  - Off label use [Not Recovered/Not Resolved]

NARRATIVE: CASE EVENT DATE: 20240326
